FAERS Safety Report 8497363-7 (Version None)
Quarter: 2012Q3

REPORT INFORMATION
  Report Type: 
  Country: None (occurrence: None)
  Receive Date: 20120709
  Receipt Date: 20120608
  Transmission Date: 20120928
  Serious: No
  Sender: FDA-Public Use
  Company Number: US-AMGEN-USASP2012036015

PATIENT
  Age: 39 Year
  Sex: Female

DRUGS (3)
  1. PLAQUENIL [Concomitant]
     Dosage: 1 MG, UNK
     Dates: start: 20090101
  2. TREXALL [Concomitant]
     Dosage: MG 7 PILLS QWK
     Dates: start: 20090101
  3. ENBREL [Suspect]
     Indication: RHEUMATOID ARTHRITIS
     Dosage: 50 MG, QWK
     Dates: start: 20120406

REACTIONS (3)
  - SYSTEMIC LUPUS ERYTHEMATOSUS [None]
  - DRUG EFFECT DECREASED [None]
  - SINUSITIS [None]
